FAERS Safety Report 8610742-X (Version None)
Quarter: 2012Q3

REPORT INFORMATION
  Report Type: 
  Country: None (occurrence: None)
  Receive Date: 20120822
  Receipt Date: 20120814
  Transmission Date: 20120928
  Serious: Yes (Other)
  Sender: FDA-Public Use
  Company Number: US-JNJFOC-20120807925

PATIENT

DRUGS (1)
  1. ITRACONAZOLE [Suspect]
     Indication: ANTIFUNGAL PROPHYLAXIS
     Route: 065

REACTIONS (6)
  - LIVER FUNCTION TEST ABNORMAL [None]
  - SYSTEMIC MYCOSIS [None]
  - PYREXIA [None]
  - NEUTROPENIA [None]
  - GASTROINTESTINAL DISORDER [None]
  - DISEASE PROGRESSION [None]
